FAERS Safety Report 18282164 (Version 1)
Quarter: 2020Q3

REPORT INFORMATION
  Report Type: Spontaneous
  Country: CA (occurrence: CA)
  Receive Date: 20200918
  Receipt Date: 20200918
  Transmission Date: 20201103
  Serious: Yes (Other)
  Sender: FDA-Public Use
  Company Number: CA-ACCORD-200684

PATIENT
  Sex: Female

DRUGS (5)
  1. CLONAZEPAM. [Suspect]
     Active Substance: CLONAZEPAM
     Indication: PANIC DISORDER
  2. REXULTI [Suspect]
     Active Substance: BREXPIPRAZOLE
     Indication: PANIC DISORDER
  3. LITHMAX [Suspect]
     Active Substance: LITHIUM CARBONATE
     Indication: PANIC DISORDER
  4. REXULTI [Suspect]
     Active Substance: BREXPIPRAZOLE
     Indication: PANIC DISORDER
     Route: 048
  5. QUETIAPINE. [Suspect]
     Active Substance: QUETIAPINE
     Indication: PANIC DISORDER

REACTIONS (4)
  - Hot flush [Not Recovered/Not Resolved]
  - Suicidal ideation [Not Recovered/Not Resolved]
  - Chills [Not Recovered/Not Resolved]
  - Tremor [Not Recovered/Not Resolved]
